FAERS Safety Report 7146291-8 (Version None)
Quarter: 2010Q4

REPORT INFORMATION
  Report Type: 
  Country: None (occurrence: None)
  Receive Date: 20101208
  Receipt Date: 20101123
  Transmission Date: 20110411
  Serious: Yes (Death, Hospitalization, Other)
  Sender: FDA-Public Use
  Company Number: FR-AMGEN-FRASP2010006888

PATIENT

DRUGS (2)
  1. ENBREL [Suspect]
     Indication: PRODUCT USED FOR UNKNOWN INDICATION
     Dosage: 25 MG, FREQUENCY UNSPECIFIED
     Dates: start: 20100101
  2. CORTISONE [Concomitant]
     Dosage: 12.5 MG

REACTIONS (1)
  - DEATH [None]
